FAERS Safety Report 5401024-8 (Version None)
Quarter: 2007Q3

REPORT INFORMATION
  Report Type: 
  Country: None (occurrence: None)
  Receive Date: 20070730
  Receipt Date: 20070723
  Transmission Date: 20080115
  Serious: Yes (Death)
  Sender: FDA-Public Use
  Company Number: NO-ABBOTT-06P-122-0336720-00

PATIENT
  Sex: Male

DRUGS (3)
  1. REDUCTIL [Suspect]
     Indication: OBESITY
     Dates: start: 20050701
  2. CANDESARTAN CILEXETIL [Suspect]
     Indication: HYPERTENSION
     Route: 048
  3. ALBYL-ENTEROSOLUBILE [Concomitant]
     Indication: CARDIOVASCULAR EVENT PROPHYLAXIS
     Route: 048

REACTIONS (4)
  - ACUTE LYMPHOCYTIC LEUKAEMIA [None]
  - DEHYDRATION [None]
  - RENAL FAILURE [None]
  - SEPTIC SHOCK [None]
